FAERS Safety Report 8237338-6 (Version None)
Quarter: 2012Q1

REPORT INFORMATION
  Report Type: 
  Country: None (occurrence: None)
  Receive Date: 20120327
  Receipt Date: 20120319
  Transmission Date: 20120608
  Serious: Yes (Other)
  Sender: FDA-Public Use
  Company Number: US-BAYER-2011-091186

PATIENT
  Sex: Female
  Weight: 104.31 kg

DRUGS (14)
  1. YAZ [Suspect]
     Dosage: UNK
     Route: 048
     Dates: start: 20090101
  2. ALBUTEROL [Concomitant]
     Indication: ASTHMA
  3. EFFEXOR [Concomitant]
     Indication: DEPRESSION
  4. VICODIN [Concomitant]
     Indication: PAIN
  5. HYDROXYZINE [Concomitant]
     Indication: NAUSEA
  6. IMIPRAMINE [Concomitant]
     Indication: BLADDER SPASM
  7. ACETAMINOPHEN [Concomitant]
     Indication: PAIN
  8. DEPO-PROVERA [Concomitant]
  9. ASPIRIN [Concomitant]
     Indication: PAIN
  10. ADVAIR DISKUS 100/50 [Concomitant]
     Indication: ASTHMA
  11. ATIVAN [Concomitant]
     Indication: ANXIETY
  12. YAZ [Suspect]
     Indication: CONTRACEPTION
     Dosage: UNK
     Route: 048
     Dates: start: 20080101, end: 20090101
  13. HYDROXYZINE [Concomitant]
     Indication: ANXIETY
  14. IBUPROFEN [Concomitant]
     Indication: PAIN

REACTIONS (12)
  - PAIN [None]
  - ANXIETY [None]
  - ANHEDONIA [None]
  - INGUINAL HERNIA [None]
  - GALLBLADDER DISORDER [None]
  - CYSTITIS INTERSTITIAL [None]
  - INJURY [None]
  - EMOTIONAL DISTRESS [None]
  - GENERAL PHYSICAL HEALTH DETERIORATION [None]
  - WEIGHT INCREASED [None]
  - HERNIA [None]
  - LIBIDO DECREASED [None]
